FAERS Safety Report 4741691-5 (Version None)
Quarter: 2005Q3

REPORT INFORMATION
  Report Type: 
  Country: None (occurrence: None)
  Receive Date: 20050801
  Receipt Date: 20050624
  Transmission Date: 20060218
  Serious: No
  Sender: FDA-Public Use
  Company Number: 2005PV000111

PATIENT
  Age: 60 Year
  Sex: Female
  Weight: 90.7194 kg

DRUGS (4)
  1. BYETTA [Suspect]
     Indication: DIABETES MELLITUS NON-INSULIN-DEPENDENT
     Dosage: 5 UG; BID; SC
     Route: 058
     Dates: start: 20050622
  2. AVANDAMET [Concomitant]
  3. HYZAAR [Concomitant]
  4. LIPITOR [Concomitant]

REACTIONS (1)
  - INJECTION SITE DISCOMFORT [None]
